FAERS Safety Report 6636876-7 (Version None)
Quarter: 2010Q1

REPORT INFORMATION
  Report Type: 
  Country: None (occurrence: None)
  Receive Date: 20100316
  Receipt Date: 20100310
  Transmission Date: 20100710
  Serious: Yes (Hospitalization)
  Sender: FDA-Public Use
  Company Number: FR-BAYER-201018659GPV

PATIENT
  Age: 72 Year
  Sex: Female

DRUGS (1)
  1. IZILOX [Suspect]
     Indication: LUNG DISORDER
     Dosage: TOTAL DAILY DOSE: 400 MG  UNIT DOSE: 400 MG
     Route: 048
     Dates: start: 20100208, end: 20100211

REACTIONS (4)
  - BACK INJURY [None]
  - FALL [None]
  - LOSS OF CONSCIOUSNESS [None]
  - MALAISE [None]
